FAERS Safety Report 7350921-5 (Version None)
Quarter: 2011Q1

REPORT INFORMATION
  Report Type: 
  Country: None (occurrence: None)
  Receive Date: 20110314
  Receipt Date: 20110304
  Transmission Date: 20110831
  Serious: Yes (Hospitalization, Other)
  Sender: FDA-Public Use
  Company Number: US-JNJFOC-20110303151

PATIENT
  Sex: Male
  Weight: 65.77 kg

DRUGS (3)
  1. HALDOL [Suspect]
     Indication: SCHIZOPHRENIA
     Dosage: 50MG WAS GIVEN ABOUT 24 YEARS AGO
     Route: 030
  2. HALDOL [Suspect]
     Route: 030
  3. ANTIDEPRESSANT NOS [Suspect]
     Indication: DEPRESSION
     Route: 048

REACTIONS (14)
  - PAIN IN EXTREMITY [None]
  - HOSPITALISATION [None]
  - WEIGHT INCREASED [None]
  - BLOOD TRIGLYCERIDES INCREASED [None]
  - FOOD CRAVING [None]
  - DEPRESSION [None]
  - ANXIETY [None]
  - SOCIAL PROBLEM [None]
  - BLOOD CHOLESTEROL INCREASED [None]
  - BLOOD PRESSURE INCREASED [None]
  - HALLUCINATION [None]
  - PARANOIA [None]
  - DRUG EFFECT DECREASED [None]
  - TREATMENT NONCOMPLIANCE [None]
